FAERS Safety Report 7501357-5 (Version None)
Quarter: 2011Q2

REPORT INFORMATION
  Report Type: 
  Country: None (occurrence: None)
  Receive Date: 20110524
  Receipt Date: 20110511
  Transmission Date: 20111010
  Serious: Yes (Hospitalization, Other)
  Sender: FDA-Public Use
  Company Number: US-BAYER-201030164NA

PATIENT
  Age: 23 Year
  Sex: Female
  Weight: 73 kg

DRUGS (7)
  1. YAZ [Suspect]
     Indication: ORAL CONTRACEPTION
     Route: 048
     Dates: start: 20030901
  2. YASMIN [Suspect]
     Indication: ORAL CONTRACEPTION
     Route: 048
     Dates: start: 20030901
  3. DROSPIRENONE AND ETHINYL ESTRADIOL [Suspect]
     Indication: ORAL CONTRACEPTION
     Route: 048
     Dates: start: 20030901
  4. SYNTHROID [Concomitant]
     Dosage: UNK UNK, QD
     Route: 048
  5. GEMFIBROZIL [Concomitant]
     Dosage: 600 MG, BID
     Route: 048
  6. TRILEPTAL [Concomitant]
     Dosage: UNK UNK, QD
     Route: 048
  7. EFFEXOR [Concomitant]
     Dosage: UNK UNK, QD
     Route: 048

REACTIONS (9)
  - BILE DUCT STONE [None]
  - PULMONARY EMBOLISM [None]
  - PELVI-URETERIC OBSTRUCTION [None]
  - CHOLECYSTITIS CHRONIC [None]
  - CEREBROVASCULAR ACCIDENT [None]
  - NEPHROPATHY [None]
  - MYOCARDIAL INFARCTION [None]
  - DEEP VEIN THROMBOSIS [None]
  - GALLBLADDER DISORDER [None]
